FAERS Safety Report 7540352-7 (Version None)
Quarter: 2011Q2

REPORT INFORMATION
  Report Type: 
  Country: None (occurrence: None)
  Receive Date: 20110610
  Receipt Date: 20101130
  Transmission Date: 20111010
  Serious: Yes (Hospitalization)
  Sender: FDA-Public Use
  Company Number: PHHY2010US90416

PATIENT

DRUGS (1)
  1. SANDOSTATIN [Suspect]
     Indication: CARCINOID SYNDROME
     Dosage: UNK
     Route: 042
     Dates: end: 20101130

REACTIONS (1)
  - WRONG TECHNIQUE IN DRUG USAGE PROCESS [None]
